FAERS Safety Report 11546803 (Version 2)
Quarter: 2015Q4

REPORT INFORMATION
  Report Type: Report from Study
  Country: CO (occurrence: CO)
  Receive Date: 20150924
  Receipt Date: 20151002
  Transmission Date: 20160304
  Serious: Yes (Hospitalization, Other)
  Sender: FDA-Public Use
  Company Number: CO-ASTRAZENECA-2015SE90714

PATIENT
  Age: 29976 Day
  Sex: Male

DRUGS (5)
  1. CARVEDILOL. [Concomitant]
     Active Substance: CARVEDILOL
  2. OMEPRAZOL [Concomitant]
     Active Substance: OMEPRAZOLE
  3. DABIGATRAN [Concomitant]
     Active Substance: DABIGATRAN
  4. BRILINTA [Suspect]
     Active Substance: TICAGRELOR
     Indication: INFARCTION
     Route: 048
     Dates: start: 20150815
  5. ASA [Concomitant]
     Active Substance: ASPIRIN

REACTIONS (7)
  - Urinary tract infection [Not Recovered/Not Resolved]
  - Faeces discoloured [Not Recovered/Not Resolved]
  - Pallor [Not Recovered/Not Resolved]
  - Bone cancer [Not Recovered/Not Resolved]
  - Nausea [Not Recovered/Not Resolved]
  - Internal haemorrhage [Not Recovered/Not Resolved]
  - Overdose [Unknown]

NARRATIVE: CASE EVENT DATE: 20150905
